FAERS Safety Report 6639430-6 (Version None)
Quarter: 2010Q1

REPORT INFORMATION
  Report Type: 
  Country: None (occurrence: None)
  Receive Date: 20100315
  Receipt Date: 20100305
  Transmission Date: 20100710
  Serious: Yes (Other)
  Sender: FDA-Public Use
  Company Number: 20108379

PATIENT
  Sex: Male

DRUGS (1)
  1. LIORESAL [Suspect]
     Indication: MUSCLE SPASTICITY
     Dosage: MCG, DAILY, INTRATHECAL
     Route: 037

REACTIONS (7)
  - HEADACHE [None]
  - HYDROCEPHALUS [None]
  - HYPERTONIA [None]
  - MUSCLE SPASTICITY [None]
  - NAUSEA [None]
  - PAIN [None]
  - SOMNOLENCE [None]
